FAERS Safety Report 23309558 (Version 1)
Quarter: 2023Q4

REPORT INFORMATION
  Report Type: Other
  Country: US (occurrence: US)
  Receive Date: 20231218
  Receipt Date: 20231218
  Transmission Date: 20240109
  Serious: Yes (Hospitalization, Other)
  Sender: FDA-Public Use
  Company Number: US-HLS-202300149

PATIENT
  Age: 41 Year
  Sex: Male
  Weight: 83 kg

DRUGS (4)
  1. CLOZAPINE [Suspect]
     Active Substance: CLOZAPINE
     Indication: Mania
     Dosage: HOSPITAL DAYS (HD) 69-79; DURATION: 11 DAYS. ??HD/DOSE ?69/6.25 MG QHS; ?70/12.5 MG QHS;?71-73/12.5
     Route: 065
  2. CLOZAPINE [Suspect]
     Active Substance: CLOZAPINE
     Indication: Psychotic symptom
     Dosage: HOSPITAL DAYS (HD) 69-79; DURATION: 11 DAYS. ??HD/DOSE ?69/6.25 MG QHS; ?70/12.5 MG QHS;?71-73/12.5
     Route: 065
  3. LORAZEPAM [Concomitant]
     Active Substance: LORAZEPAM
     Indication: Anxiety
     Dosage: 1MG THREE TIMES DAILY
     Route: 048
  4. Bictegravir/ emtricitabine/tenofovir alafenamide [Concomitant]
     Indication: Acquired immunodeficiency syndrome
     Route: 065

REACTIONS (2)
  - Orthostatic hypotension [Recovered/Resolved]
  - Tachycardia [Recovered/Resolved]
